FAERS Safety Report 21718572 (Version 3)
Quarter: 2024Q2

REPORT INFORMATION
  Report Type: Report from Study
  Country: US (occurrence: US)
  Receive Date: 20221212
  Receipt Date: 20240607
  Transmission Date: 20240716
  Serious: Yes (Other)
  Sender: FDA-Public Use
  Company Number: US-ABBVIE-4232640

PATIENT
  Age: 51 Year
  Sex: Female

DRUGS (4)
  1. HUMIRA [Suspect]
     Active Substance: ADALIMUMAB
     Indication: Rheumatoid arthritis
     Dosage: CITRATE FREE
     Route: 058
     Dates: start: 20200101, end: 20210101
  2. HUMIRA [Suspect]
     Active Substance: ADALIMUMAB
     Dosage: CITRATE FREE
     Route: 058
     Dates: start: 20221203
  3. HUMIRA [Suspect]
     Active Substance: ADALIMUMAB
     Route: 058
     Dates: start: 20150615
  4. METHOTREXATE [Concomitant]
     Active Substance: METHOTREXATE
     Indication: Product used for unknown indication

REACTIONS (8)
  - Shoulder arthroplasty [Recovering/Resolving]
  - Osteoarthritis [Unknown]
  - Hip arthroplasty [Recovering/Resolving]
  - Drug ineffective [Unknown]
  - Hip arthroplasty [Unknown]
  - Osteoarthritis [Recovering/Resolving]
  - Spinal osteoarthritis [Unknown]
  - Joint arthroplasty [Recovering/Resolving]

NARRATIVE: CASE EVENT DATE: 20190115
